FAERS Safety Report 13515158 (Version 1)
Quarter: 2017Q2

REPORT INFORMATION
  Report Type: Spontaneous
  Country: FR (occurrence: FR)
  Receive Date: 20170504
  Receipt Date: 20170504
  Transmission Date: 20170830
  Serious: Yes (Hospitalization)
  Sender: FDA-Public Use
  Company Number: FR-TEVA-764301ROM

PATIENT
  Age: 39 Year
  Sex: Male

DRUGS (13)
  1. DOXORUBICINE TEVA [Suspect]
     Active Substance: DOXORUBICIN
     Indication: B-CELL LYMPHOMA
     Route: 042
     Dates: start: 20160411, end: 20160524
  2. CARMUSTINE [Concomitant]
     Active Substance: CARMUSTINE
     Indication: B-CELL LYMPHOMA
     Dosage: CONDITIONING WITH COURSE OF BEAC PROTOCOL
     Dates: start: 201611, end: 201611
  3. MABTHERA [Concomitant]
     Active Substance: RITUXIMAB
     Indication: B-CELL LYMPHOMA
     Route: 042
     Dates: start: 20160411
  4. CYTARABINE. [Concomitant]
     Active Substance: CYTARABINE
     Indication: B-CELL LYMPHOMA
     Dates: start: 201606, end: 201609
  5. CYTARABINE. [Concomitant]
     Active Substance: CYTARABINE
     Dosage: CONDITIONING WITH COURSE OF BEAC PROTOCOL
     Dates: start: 201611, end: 201611
  6. VERATRAN [Concomitant]
     Active Substance: CLOTIAZEPAM
     Indication: B-CELL LYMPHOMA
     Dosage: OCCASIONAL INTAKE
  7. ENDOXAN [Suspect]
     Active Substance: CYCLOPHOSPHAMIDE
     Indication: B-CELL LYMPHOMA
     Route: 042
     Dates: start: 20160411
  8. ENDOXAN [Suspect]
     Active Substance: CYCLOPHOSPHAMIDE
     Dosage: CONDITIONING WITH COURSE OF BEAC PROTOCOL
     Route: 042
     Dates: start: 201611, end: 20161110
  9. VINCRISTINE HOSPIRA [Suspect]
     Active Substance: VINCRISTINE
     Indication: B-CELL LYMPHOMA
     Route: 042
     Dates: start: 20160411, end: 20160524
  10. MABTHERA [Concomitant]
     Active Substance: RITUXIMAB
     Route: 042
     Dates: start: 201606, end: 20160929
  11. DEXAMETHASONE. [Concomitant]
     Active Substance: DEXAMETHASONE
     Indication: B-CELL LYMPHOMA
     Dates: start: 201606, end: 201609
  12. OXALIPLATIN. [Concomitant]
     Active Substance: OXALIPLATIN
     Indication: B-CELL LYMPHOMA
     Dates: start: 201606, end: 201609
  13. ETOPOSIDE. [Concomitant]
     Active Substance: ETOPOSIDE
     Indication: B-CELL LYMPHOMA
     Dosage: CONDITIONING WITH COURSE OF BEAC PROTOCOL
     Dates: start: 201611, end: 201611

REACTIONS (4)
  - Cardiomyopathy [Not Recovered/Not Resolved]
  - Cardiac failure [Not Recovered/Not Resolved]
  - Hypertension [Not Recovered/Not Resolved]
  - Sinus tachycardia [Not Recovered/Not Resolved]

NARRATIVE: CASE EVENT DATE: 20170302
